FAERS Safety Report 23890770 (Version 3)
Quarter: 2024Q3

REPORT INFORMATION
  Report Type: Spontaneous
  Country: US (occurrence: US)
  Receive Date: 20240523
  Receipt Date: 20240912
  Transmission Date: 20241017
  Serious: No
  Sender: BRISTOL MYERS SQUIBB
  Company Number: US-BRISTOL-MYERS SQUIBB COMPANY-2024-080545

PATIENT
  Age: 74 Year
  Sex: Female
  Weight: 46.72 kg

DRUGS (1)
  1. REVLIMID [Suspect]
     Active Substance: LENALIDOMIDE
     Indication: Plasma cell myeloma
     Dosage: 2W ON 1W OFF
     Route: 048

REACTIONS (5)
  - Rash macular [Recovering/Resolving]
  - Off label use [Unknown]
  - Oral pain [Unknown]
  - Product communication issue [Unknown]
  - Inappropriate schedule of product administration [Unknown]
